FAERS Safety Report 6985305-2 (Version None)
Quarter: 2010Q3

REPORT INFORMATION
  Report Type: 
  Country: None (occurrence: None)
  Receive Date: 20100915
  Receipt Date: 20100816
  Transmission Date: 20110219
  Serious: No
  Sender: FDA-Public Use
  Company Number: US-PFIZER INC-2010103005

PATIENT
  Sex: Female
  Weight: 63 kg

DRUGS (8)
  1. LYRICA [Suspect]
     Indication: NEUROPATHY PERIPHERAL
     Dosage: 25 MG, DAILY
     Route: 048
     Dates: start: 20100803
  2. LYRICA [Suspect]
     Dosage: 25 MG, 2X/DAY
     Dates: start: 20100801
  3. LYRICA [Suspect]
     Dosage: 75 MG, 2X/DAY
     Dates: start: 20100812
  4. NORVASC [Concomitant]
     Indication: BLOOD PRESSURE INCREASED
     Dosage: 10 MG, DAILY
     Route: 048
  5. PAXIL [Concomitant]
     Indication: DEPRESSION
     Dosage: 40 MG, DAILY
     Route: 048
  6. PAXIL [Concomitant]
     Indication: ANXIETY
  7. TRAZODONE [Concomitant]
     Indication: SLEEP DISORDER
     Dosage: 100 MG, DAILY
     Route: 048
  8. WELLBUTRIN [Concomitant]
     Indication: ANXIETY
     Dosage: 75 MG, 2X/DAY
     Route: 048

REACTIONS (2)
  - BURNING SENSATION [None]
  - DRUG INEFFECTIVE [None]
